FAERS Safety Report 11075964 (Version 1)
Quarter: 2015Q2

REPORT INFORMATION
  Report Type: Spontaneous
  Country: US (occurrence: US)
  Receive Date: 20150429
  Receipt Date: 20150429
  Transmission Date: 20150821
  Serious: No
  Sender: FDA-Public Use
  Company Number: US-ASTRAZENECA-2015SE37932

PATIENT
  Age: 55 Year
  Sex: Female

DRUGS (1)
  1. CRESTOR [Suspect]
     Active Substance: ROSUVASTATIN CALCIUM
     Route: 048

REACTIONS (4)
  - Photophobia [Recovered/Resolved]
  - Myalgia [Recovered/Resolved]
  - Temperature intolerance [Recovered/Resolved]
  - Disturbance in attention [Recovered/Resolved]
